FAERS Safety Report 7972803-8 (Version None)
Quarter: 2011Q4

REPORT INFORMATION
  Report Type: 
  Country: None (occurrence: None)
  Receive Date: 20111213
  Receipt Date: 20111208
  Transmission Date: 20120403
  Serious: No
  Sender: FDA-Public Use
  Company Number: US-PFIZER INC-2011300414

PATIENT
  Sex: Female

DRUGS (3)
  1. ADVIL LIQUI-GELS [Suspect]
     Indication: NASOPHARYNGITIS
  2. ADVIL LIQUI-GELS [Suspect]
     Indication: HEADACHE
     Dosage: UNK, 2X/DAY
     Route: 048
     Dates: start: 20111101, end: 20111201
  3. ADVIL LIQUI-GELS [Suspect]
     Indication: SINUS DISORDER

REACTIONS (3)
  - DRUG INEFFECTIVE [None]
  - NASOPHARYNGITIS [None]
  - HEADACHE [None]
